FAERS Safety Report 8776998 (Version 2)
Quarter: 2012Q4

REPORT INFORMATION
  Report Type: 
  Country: US (occurrence: US)
  Receive Date: 20120911
  Receipt Date: 20121214
  Transmission Date: 20130627
  Serious: Yes (Hospitalization)
  Sender: FDA-Public Use
  Company Number: US-BAYER-2012-093951

PATIENT
  Age: 28 Year
  Sex: Female
  Weight: 81.63 kg

DRUGS (5)
  1. YAZ [Suspect]
     Indication: CONTRACEPTION
     Dosage: UNK
     Dates: start: 200905, end: 200908
  2. YAZ [Suspect]
     Indication: ACNE
  3. ACCUTANE [Concomitant]
  4. LOESTRIN [Concomitant]
  5. DARVOCET-N [Concomitant]
     Dosage: 100 p.r.n

REACTIONS (1)
  - Pulmonary embolism [None]
